FAERS Safety Report 16706155 (Version 4)
Quarter: 2021Q3

REPORT INFORMATION
  Report Type: Spontaneous
  Country: US (occurrence: US)
  Receive Date: 20190815
  Receipt Date: 20210805
  Transmission Date: 20211014
  Serious: Yes (Other)
  Sender: FDA-Public Use
  Company Number: US-PFIZER INC-2019286964

PATIENT
  Age: 68 Year
  Sex: Female
  Weight: 89.81 kg

DRUGS (1)
  1. IBRANCE [Suspect]
     Active Substance: PALBOCICLIB
     Indication: BREAST CANCER METASTATIC
     Dosage: 75 MG, ONCE DAY (WITH FOOD MONDAY?FRIDAYS ONLY, OFF ON SATURDAY AND SUNDAYS Q21 DAYS,7DAYS OFF)
     Route: 048
     Dates: start: 201905

REACTIONS (1)
  - Thrombocytopenia [Unknown]
